FAERS Safety Report 9454523 (Version 2)
Quarter: 2013Q3

REPORT INFORMATION
  Report Type: Spontaneous
  Country: JP (occurrence: JP)
  Receive Date: 20130812
  Receipt Date: 20130903
  Transmission Date: 20140515
  Serious: Yes (Hospitalization)
  Sender: FDA-Public Use
  Company Number: JP-GLAXOSMITHKLINE-B0909699A

PATIENT
  Age: 23 Year
  Sex: Female

DRUGS (7)
  1. LAMICTAL [Suspect]
     Indication: BIPOLAR II DISORDER
     Dosage: 100MG PER DAY
     Route: 048
     Dates: start: 20121024, end: 20130716
  2. LAMICTAL [Suspect]
     Indication: BIPOLAR II DISORDER
     Route: 048
     Dates: start: 20130716, end: 20130716
  3. LAMICTAL [Suspect]
     Indication: BIPOLAR II DISORDER
     Dosage: 100MG PER DAY
     Route: 048
     Dates: start: 20130729
  4. RIVOTRIL [Suspect]
     Indication: ANXIETY
     Route: 048
     Dates: start: 20121114
  5. RIVOTRIL [Suspect]
     Indication: ANXIETY
     Route: 048
     Dates: start: 20130716, end: 20130716
  6. ZOPICOOL [Suspect]
     Indication: PRODUCT USED FOR UNKNOWN INDICATION
     Dosage: 7.5MG PER DAY
     Route: 048
     Dates: start: 20121024
  7. ZOPICOOL [Suspect]
     Indication: PRODUCT USED FOR UNKNOWN INDICATION
     Route: 048
     Dates: start: 20130716, end: 20130716

REACTIONS (6)
  - Convulsion [Recovered/Resolved]
  - Depressed level of consciousness [Recovered/Resolved]
  - Somnolence [Recovered/Resolved]
  - Feeling abnormal [Recovering/Resolving]
  - Stupor [Recovering/Resolving]
  - Intentional overdose [Unknown]
